FAERS Safety Report 7966863-8 (Version None)
Quarter: 2011Q4

REPORT INFORMATION
  Report Type: 
  Country: None (occurrence: None)
  Receive Date: 20111209
  Receipt Date: 20111202
  Transmission Date: 20120403
  Serious: No
  Sender: FDA-Public Use
  Company Number: US-PFIZER INC-2011297227

PATIENT
  Age: 10 Year
  Sex: Male

DRUGS (1)
  1. EPIPEN [Suspect]
     Indication: HYPERSENSITIVITY

REACTIONS (1)
  - DRUG INEFFECTIVE [None]
